FAERS Safety Report 6332473-1 (Version None)
Quarter: 2009Q3

REPORT INFORMATION
  Report Type: 
  Country: None (occurrence: None)
  Receive Date: 20090828
  Receipt Date: 20090624
  Transmission Date: 20100115
  Serious: Yes (Death, Other)
  Sender: FDA-Public Use
  Company Number: FR-PFIZER INC-2009231213

PATIENT
  Age: 67 Year

DRUGS (2)
  1. SOLU-MEDROL [Suspect]
     Dosage: UNK
  2. TPN [Suspect]
     Indication: PARENTERAL NUTRITION
     Dosage: UNK
     Route: 051
     Dates: start: 20081209, end: 20081213

REACTIONS (2)
  - CONDITION AGGRAVATED [None]
  - HYPERGLYCAEMIA [None]
